FAERS Safety Report 19192735 (Version 2)
Quarter: 2021Q2

REPORT INFORMATION
  Report Type: Spontaneous
  Country: US (occurrence: US)
  Receive Date: 20210428
  Receipt Date: 20210510
  Transmission Date: 20210717
  Serious: No
  Sender: FDA-Public Use
  Company Number: NVSC2021US089176

PATIENT
  Age: 30 Year
  Sex: Male

DRUGS (2)
  1. ADAKVEO [Suspect]
     Active Substance: CRIZANLIZUMAB-TMCA
     Indication: SICKLE CELL ANAEMIA WITH CRISIS
     Dosage: UNK
     Route: 065
  2. ADAKVEO [Suspect]
     Active Substance: CRIZANLIZUMAB-TMCA
     Dosage: OTHER DOSAGE: 5MG/KG
     Route: 042
     Dates: start: 20210326, end: 20210409

REACTIONS (4)
  - Chest pain [Recovered/Resolved]
  - Musculoskeletal chest pain [Recovered/Resolved]
  - Haematocrit abnormal [Unknown]
  - Haemoglobin abnormal [Unknown]

NARRATIVE: CASE EVENT DATE: 20210409
